FAERS Safety Report 5739777-1 (Version None)
Quarter: 2008Q2

REPORT INFORMATION
  Report Type: 
  Country: None (occurrence: None)
  Receive Date: 20080512
  Receipt Date: 20080512
  Transmission Date: 20081010
  Serious: Yes (Hospitalization)
  Sender: FDA-Public Use
  Company Number: None

PATIENT
  Age: 61 Year
  Sex: Male

DRUGS (2)
  1. CELECOXIB [Suspect]
  2. ASPIRIN [Suspect]

REACTIONS (5)
  - ANAEMIA [None]
  - GASTRIC ULCER [None]
  - HAEMOGLOBIN DECREASED [None]
  - MELAENA [None]
  - SYNCOPE [None]
